FAERS Safety Report 5085006-4 (Version None)
Quarter: 2006Q3

REPORT INFORMATION
  Report Type: 
  Country: None (occurrence: None)
  Receive Date: 20060815
  Receipt Date: 20060802
  Transmission Date: 20061208
  Serious: Yes (Other)
  Sender: FDA-Public Use
  Company Number: HQWYE828303AUG06

PATIENT
  Age: 42 Year
  Sex: Female
  Weight: 61.29 kg

DRUGS (6)
  1. EFFEXOR [Suspect]
     Indication: BIPOLAR DISORDER
     Dosage: 1.5 TABLET 1X PER 1 DAY, ORAL
     Route: 048
     Dates: start: 19950101
  2. UNSPECIFIED SINUS MEDICATION (UNSPECIFIED SINUS MEDICATION, ) [Suspect]
  3. VICODIN [Concomitant]
  4. LEVOXYL [Concomitant]
  5. VYTORIN [Concomitant]
  6. TYLENOL W/ CODEINE NO. 3 [Concomitant]

REACTIONS (3)
  - DENTAL CARIES [None]
  - DRY MOUTH [None]
  - GLOSSITIS [None]
